FAERS Safety Report 19145118 (Version 4)
Quarter: 2021Q2

REPORT INFORMATION
  Report Type: Spontaneous
  Country: DE (occurrence: DE)
  Receive Date: 20210416
  Receipt Date: 20210531
  Transmission Date: 20210717
  Serious: Yes (Hospitalization, Disabling, Other)
  Sender: FDA-Public Use
  Company Number: NVSC2021DE080748

PATIENT
  Age: 38 Year
  Sex: Male
  Weight: 80 kg

DRUGS (6)
  1. QUETIAPIN NEURAXPHARM [Concomitant]
     Indication: PRODUCT USED FOR UNKNOWN INDICATION
     Dosage: 25 MG, QD (0?0?0?1)
     Route: 065
  2. ROSUVASTATIN. [Concomitant]
     Active Substance: ROSUVASTATIN
     Indication: PRODUCT USED FOR UNKNOWN INDICATION
     Dosage: 5 MG, QD (0?0?1)
     Route: 065
  3. RAMIPRIL HEXAL [Concomitant]
     Active Substance: RAMIPRIL
     Indication: PRODUCT USED FOR UNKNOWN INDICATION
     Dosage: 5 MG, QD (2.5 MG 1?0?1?0)
     Route: 065
  4. CIPROFLOXACIN. [Suspect]
     Active Substance: CIPROFLOXACIN
     Indication: PROSTATITIS
     Dosage: 500 MG, QD (2X250MG)
     Route: 048
     Dates: start: 20200715, end: 20200719
  5. BETAMETHASON [Concomitant]
     Active Substance: BETAMETHASONE
     Indication: PRODUCT USED FOR UNKNOWN INDICATION
     Dosage: UNK
     Route: 065
  6. BETAMETHASON [Concomitant]
     Active Substance: BETAMETHASONE
     Dosage: UNK
     Route: 065

REACTIONS (9)
  - Neuralgia [Recovered/Resolved with Sequelae]
  - Haematochezia [Unknown]
  - Arthralgia [Unknown]
  - Myalgia [Recovered/Resolved with Sequelae]
  - Penile pain [Unknown]
  - Pain [Recovered/Resolved with Sequelae]
  - Pain in extremity [Unknown]
  - Abdominal discomfort [Unknown]
  - Pain in extremity [Recovered/Resolved with Sequelae]

NARRATIVE: CASE EVENT DATE: 2020
